FAERS Safety Report 12516999 (Version 1)
Quarter: 2016Q2

REPORT INFORMATION
  Report Type: Spontaneous
  Country: CA (occurrence: CA)
  Receive Date: 20160630
  Receipt Date: 20160630
  Transmission Date: 20160815
  Serious: Yes (Other)
  Sender: FDA-Public Use
  Company Number: CA-SA-2016SA119599

PATIENT
  Age: 47 Year
  Sex: Male

DRUGS (1)
  1. AUBAGIO [Suspect]
     Active Substance: TERIFLUNOMIDE
     Route: 048
     Dates: start: 201606

REACTIONS (6)
  - Alanine aminotransferase increased [Unknown]
  - Fall [Unknown]
  - Asthenia [Unknown]
  - Failure to thrive [Unknown]
  - Multiple sclerosis [Unknown]
  - Hepatic enzyme increased [Unknown]
